FAERS Safety Report 10256539 (Version 1)
Quarter: 2014Q2

REPORT INFORMATION
  Report Type: Report from Study
  Country: GB (occurrence: GB)
  Receive Date: 20140624
  Receipt Date: 20140624
  Transmission Date: 20141212
  Serious: Yes (Hospitalization, Other)
  Sender: FDA-Public Use
  Company Number: GB-JNJFOC-20130500928

PATIENT
  Age: 82 Year
  Sex: Female
  Weight: 79.82 kg

DRUGS (12)
  1. XARELTO [Suspect]
     Indication: THROMBOSIS PROPHYLAXIS
     Route: 048
     Dates: start: 20130408, end: 20130423
  2. XARELTO [Suspect]
     Indication: CEREBROVASCULAR ACCIDENT PROPHYLAXIS
     Route: 048
     Dates: start: 20130408, end: 20130423
  3. LACTULOSE [Concomitant]
     Route: 065
  4. ALFACALCIDOL [Concomitant]
     Route: 065
  5. SODIUM BICARBONATE [Concomitant]
     Route: 065
  6. SIMVASTATIN [Concomitant]
     Route: 065
  7. RAMIPRIL [Concomitant]
     Route: 065
  8. LANSOPRAZOLE [Concomitant]
     Route: 065
  9. BISOPROLOL [Concomitant]
     Route: 065
  10. AMITRIPTYLINE [Concomitant]
     Route: 065
  11. CITALOPRAM [Concomitant]
     Route: 065
     Dates: end: 20130423
  12. BUMETANIDE [Concomitant]
     Route: 065

REACTIONS (1)
  - Gastritis [Recovering/Resolving]
